FAERS Safety Report 13246764 (Version 2)
Quarter: 2017Q1

REPORT INFORMATION
  Report Type: Spontaneous
  Country: US (occurrence: US)
  Receive Date: 20170217
  Receipt Date: 20170330
  Transmission Date: 20170428
  Serious: Yes (Other)
  Sender: FDA-Public Use
  Company Number: US-SA-2017SA025184

PATIENT
  Age: 58 Year
  Sex: Female

DRUGS (9)
  1. LEVETIRACETAM. [Concomitant]
     Active Substance: LEVETIRACETAM
  2. AUBAGIO [Suspect]
     Active Substance: TERIFLUNOMIDE
     Indication: MULTIPLE SCLEROSIS
     Route: 048
  3. BACLOFEN. [Concomitant]
     Active Substance: BACLOFEN
  4. TIZANIDINE HYDROCHLORIDE. [Concomitant]
     Active Substance: TIZANIDINE HYDROCHLORIDE
  5. FOLIC ACID. [Concomitant]
     Active Substance: FOLIC ACID
  6. BIOTIN [Concomitant]
     Active Substance: BIOTIN
  7. ESCITALOPRAM OXALATE. [Concomitant]
     Active Substance: ESCITALOPRAM OXALATE
  8. DETROL [Concomitant]
     Active Substance: TOLTERODINE TARTRATE
  9. RALOXIFENE HYDROCHLORIDE/RALOXIFENE HYDROCHLORIDE/RALOXIFENE HYDROCHLORIDE [Concomitant]

REACTIONS (2)
  - Kidney infection [Unknown]
  - Nephrolithiasis [Unknown]
